FAERS Safety Report 10462505 (Version 2)
Quarter: 2024Q1

REPORT INFORMATION
  Report Type: Spontaneous
  Country: PT (occurrence: PT)
  Receive Date: 20140918
  Receipt Date: 20240322
  Transmission Date: 20240410
  Serious: Yes (Hospitalization, Other)
  Sender: FDA-Public Use
  Company Number: PHHY2014PT119446

PATIENT
  Age: 8 Year
  Sex: Female

DRUGS (8)
  1. CARBAMAZEPINE [Suspect]
     Active Substance: CARBAMAZEPINE
     Indication: Epilepsy
     Dosage: UNK
     Route: 065
  2. VALPROATE SODIUM [Suspect]
     Active Substance: VALPROATE SODIUM
     Indication: Epilepsy
     Dosage: UNK
     Route: 065
  3. IBUPROFEN [Concomitant]
     Active Substance: IBUPROFEN
     Indication: Epilepsy
     Dosage: UNK
     Route: 065
  4. IBUPROFEN [Concomitant]
     Active Substance: IBUPROFEN
     Indication: Product used for unknown indication
  5. AMOXICILLIN [Concomitant]
     Active Substance: AMOXICILLIN
     Indication: Otitis media acute
     Dosage: UNK
     Route: 065
  6. AMOXICILLIN [Concomitant]
     Active Substance: AMOXICILLIN
     Indication: Otitis media
  7. CLAVULANIC ACID [Concomitant]
     Active Substance: CLAVULANIC ACID
     Indication: Otitis media acute
     Dosage: UNK
     Route: 065
  8. CLAVULANIC ACID [Concomitant]
     Active Substance: CLAVULANIC ACID
     Indication: Otitis media

REACTIONS (16)
  - Drug reaction with eosinophilia and systemic symptoms [Recovering/Resolving]
  - Pyrexia [Recovering/Resolving]
  - Rash [Recovering/Resolving]
  - Odynophagia [Recovering/Resolving]
  - Face oedema [Recovering/Resolving]
  - Oedema peripheral [Recovering/Resolving]
  - Pruritus [Recovering/Resolving]
  - Lymphadenopathy [Recovering/Resolving]
  - Cheilitis [Recovering/Resolving]
  - Ear pain [Unknown]
  - Eosinophilia [Recovering/Resolving]
  - Decreased appetite [Unknown]
  - Rash macular [Recovering/Resolving]
  - Splenomegaly [Recovering/Resolving]
  - Anaemia [Recovering/Resolving]
  - Dry mouth [Recovering/Resolving]
